FAERS Safety Report 7108337-2 (Version None)
Quarter: 2010Q4

REPORT INFORMATION
  Report Type: 
  Country: None (occurrence: None)
  Receive Date: 20101117
  Receipt Date: 20101112
  Transmission Date: 20110411
  Serious: Yes (Hospitalization)
  Sender: FDA-Public Use
  Company Number: CO-ROCHE-741017

PATIENT
  Sex: Female

DRUGS (1)
  1. CELLCEPT [Suspect]
     Route: 048
     Dates: start: 20091202, end: 20101013

REACTIONS (1)
  - TRANSPLANT REJECTION [None]
